FAERS Safety Report 4861225-4 (Version None)
Quarter: 2005Q4

REPORT INFORMATION
  Report Type: 
  Country: None (occurrence: None)
  Receive Date: 20051220
  Receipt Date: 20051209
  Transmission Date: 20060501
  Serious: Yes (Other)
  Sender: FDA-Public Use
  Company Number: CA-BRISTOL-MYERS SQUIBB COMPANY-13220843

PATIENT
  Age: 84 Year
  Sex: Female

DRUGS (11)
  1. TEQUIN [Suspect]
     Route: 048
  2. ENTERIC COATED ACETYLSALICYLIC ACID [Concomitant]
     Route: 048
  3. ATROVENT [Concomitant]
  4. CLONAZEPAM [Concomitant]
     Route: 047
  5. DIVALPROEX SODIUM [Concomitant]
     Route: 048
  6. LASIX [Concomitant]
     Route: 042
  7. LITHIUM [Concomitant]
     Route: 048
  8. LOVENOX [Concomitant]
     Route: 058
  9. METOPROLOL [Concomitant]
     Route: 048
  10. SEROQUEL [Concomitant]
     Route: 048
  11. VENTOLIN [Concomitant]

REACTIONS (2)
  - BLOOD CREATININE [None]
  - HYPERGLYCAEMIA [None]
